FAERS Safety Report 23405057 (Version 1)
Quarter: 2024Q1

REPORT INFORMATION
  Report Type: Spontaneous
  Country: US (occurrence: None)
  Receive Date: 20240112
  Receipt Date: 20240112
  Transmission Date: 20240410
  Serious: No
  Sender: FDA-Public Use
  Company Number: None

PATIENT
  Sex: Female

DRUGS (1)
  1. STELARA [Suspect]
     Active Substance: USTEKINUMAB
     Indication: Pustular psoriasis
     Dosage: 90MG EVERY 12 WEEKS UNDER THE SKIN?
     Route: 058
     Dates: start: 202106

REACTIONS (1)
  - Drug ineffective [None]
